FAERS Safety Report 4776621-3 (Version None)
Quarter: 2005Q3

REPORT INFORMATION
  Report Type: 
  Country: None (occurrence: None)
  Receive Date: 20050921
  Receipt Date: 20050908
  Transmission Date: 20060218
  Serious: Yes (Death, Hospitalization)
  Sender: FDA-Public Use
  Company Number: 2005125875

PATIENT
  Sex: Male

DRUGS (7)
  1. MACUGEN [Suspect]
     Indication: ILL-DEFINED DISORDER
     Dosage: INTRAVENOUS
     Route: 042
     Dates: end: 20050805
  2. PLAVIX [Concomitant]
  3. ALAPRIL (LISINOPRIL) [Concomitant]
  4. LIPITOR [Concomitant]
  5. ALBUTEROL [Concomitant]
  6. ALPRAZOLAM [Concomitant]
  7. VALIUM [Concomitant]

REACTIONS (4)
  - CHRONIC OBSTRUCTIVE PULMONARY DISEASE [None]
  - DISCOMFORT [None]
  - OPTIC NERVE DISORDER [None]
  - SENSATION OF PRESSURE [None]
